FAERS Safety Report 4485668-6 (Version None)
Quarter: 2004Q4

REPORT INFORMATION
  Report Type: 
  Country: None (occurrence: None)
  Receive Date: 20041022
  Receipt Date: 20040917
  Transmission Date: 20050328
  Serious: Yes (Other)
  Sender: FDA-Public Use
  Company Number: A03200403196

PATIENT
  Age: 54 Year
  Sex: Male

DRUGS (1)
  1. ELOXATIN [Suspect]
     Indication: RECTAL CANCER
     Dosage: 65 MG/M2 Q2W - INTRAVENOUS NOS
     Route: 042
     Dates: start: 20040706

REACTIONS (2)
  - HEPATIC CIRRHOSIS [None]
  - SPLENOMEGALY [None]
